FAERS Safety Report 9173984 (Version 1)
Quarter: 2013Q1

REPORT INFORMATION
  Report Type: Spontaneous
  Country: US (occurrence: None)
  Receive Date: 20130318
  Receipt Date: 20130318
  Transmission Date: 20140127
  Serious: Yes (Hospitalization)
  Sender: FDA-Public Use
  Company Number: 001494723A

PATIENT
  Age: 18 Year
  Sex: Female

DRUGS (5)
  1. PROACTIV RENEWING  CLEANSER [Suspect]
     Indication: ACNE
     Route: 023
     Dates: start: 20121114, end: 20121129
  2. PROACTIV RENEWING  CLEANSER [Suspect]
     Indication: ACNE
     Route: 023
     Dates: start: 20121114, end: 20121129
  3. PROACTIV RENEWING  CLEANSER [Suspect]
     Route: 023
     Dates: start: 20121114, end: 20121129
  4. PROACTIV REPAIRING TREATMENT [Suspect]
  5. PROACTIV DEEP CLEANSING WASH [Suspect]

REACTIONS (2)
  - Dry skin [None]
  - Urticaria [None]
